FAERS Safety Report 10083186 (Version 33)
Quarter: 2016Q3

REPORT INFORMATION
  Report Type: Report from Study
  Country: CA (occurrence: CA)
  Receive Date: 20140417
  Receipt Date: 20160902
  Transmission Date: 20161108
  Serious: Yes (Life-Threatening, Hospitalization, Other)
  Sender: FDA-Public Use
  Company Number: CA-ROCHE-1130084

PATIENT
  Age: 62 Year
  Sex: Male
  Weight: 78 kg

DRUGS (19)
  1. ACTEMRA [Suspect]
     Active Substance: TOCILIZUMAB
     Route: 042
     Dates: start: 20150524
  2. METHOTREXATE. [Suspect]
     Active Substance: METHOTREXATE
     Route: 065
     Dates: start: 2008
  3. FOLIC ACID. [Concomitant]
     Active Substance: FOLIC ACID
     Route: 065
     Dates: start: 2004
  4. PANTOLOC [Concomitant]
     Active Substance: PANTOPRAZOLE SODIUM
     Route: 065
  5. CELEBREX [Concomitant]
     Active Substance: CELECOXIB
     Route: 065
     Dates: start: 2006
  6. PANTOLOC [Concomitant]
     Active Substance: PANTOPRAZOLE SODIUM
     Route: 065
     Dates: start: 2004
  7. ACTEMRA [Suspect]
     Active Substance: TOCILIZUMAB
     Route: 042
     Dates: start: 20160511
  8. METHOTREXATE. [Suspect]
     Active Substance: METHOTREXATE
     Indication: PRODUCT USED FOR UNKNOWN INDICATION
     Route: 065
     Dates: start: 2008
  9. ACTEMRA [Suspect]
     Active Substance: TOCILIZUMAB
     Indication: RHEUMATOID ARTHRITIS
     Route: 042
     Dates: start: 2005, end: 201009
  10. ACTEMRA [Suspect]
     Active Substance: TOCILIZUMAB
     Route: 042
     Dates: start: 20150625
  11. ACTEMRA [Suspect]
     Active Substance: TOCILIZUMAB
     Route: 042
     Dates: start: 20160217
  12. ACTEMRA [Suspect]
     Active Substance: TOCILIZUMAB
     Route: 042
     Dates: start: 20160316
  13. CORTISONE [Concomitant]
     Active Substance: CORTISONE\HYDROCORTISONE
  14. ACTEMRA [Suspect]
     Active Substance: TOCILIZUMAB
     Route: 042
     Dates: start: 20100930
  15. CRESTOR [Concomitant]
     Active Substance: ROSUVASTATIN CALCIUM
     Route: 065
     Dates: start: 2009
  16. CELEBREX [Concomitant]
     Active Substance: CELECOXIB
     Route: 065
     Dates: start: 2006
  17. ACTEMRA [Suspect]
     Active Substance: TOCILIZUMAB
     Route: 042
     Dates: start: 20130613
  18. ACTEMRA [Suspect]
     Active Substance: TOCILIZUMAB
     Route: 042
     Dates: start: 20150304
  19. PLAQUENIL [Concomitant]
     Active Substance: HYDROXYCHLOROQUINE SULFATE
     Route: 065

REACTIONS (37)
  - Fungal infection [Not Recovered/Not Resolved]
  - Arthritis [Unknown]
  - Anaemia [Unknown]
  - Drug effect decreased [Not Recovered/Not Resolved]
  - Urinary tract infection [Unknown]
  - Dementia [Unknown]
  - Fall [Unknown]
  - Peripheral swelling [Unknown]
  - Ocular hyperaemia [Not Recovered/Not Resolved]
  - Fatigue [Unknown]
  - Post procedural discharge [Unknown]
  - Cataract [Not Recovered/Not Resolved]
  - Aneurysm [Unknown]
  - Weight increased [Unknown]
  - Oxygen saturation decreased [Unknown]
  - Rash [Not Recovered/Not Resolved]
  - Meningitis [Unknown]
  - Arthralgia [Not Recovered/Not Resolved]
  - Infusion related reaction [Unknown]
  - Oxygen saturation decreased [Unknown]
  - Headache [Unknown]
  - Intracranial aneurysm [Unknown]
  - Arthropathy [Unknown]
  - Blood pressure increased [Unknown]
  - Blood pressure increased [Unknown]
  - Back pain [Not Recovered/Not Resolved]
  - Asthenia [Not Recovered/Not Resolved]
  - Blood pressure increased [Unknown]
  - Delirium [Unknown]
  - Onychomycosis [Recovering/Resolving]
  - Musculoskeletal pain [Not Recovered/Not Resolved]
  - Hypertension [Unknown]
  - Abdominal pain [Unknown]
  - Pain in extremity [Unknown]
  - Eye oedema [Not Recovered/Not Resolved]
  - Weight decreased [Unknown]
  - Headache [Recovered/Resolved]

NARRATIVE: CASE EVENT DATE: 20110804
